FAERS Safety Report 9713839 (Version 1)
Quarter: 2013Q4

REPORT INFORMATION
  Report Type: Spontaneous
  Country: CA (occurrence: CA)
  Receive Date: 20131126
  Receipt Date: 20131126
  Transmission Date: 20140711
  Serious: Yes (Hospitalization)
  Sender: FDA-Public Use
  Company Number: CA-GLAXOSMITHKLINE-A1050461A

PATIENT
  Sex: Female
  Weight: 52.3 kg

DRUGS (3)
  1. ADVAIR [Suspect]
     Indication: RESPIRATORY DISORDER
     Dosage: 1PUFF TWICE PER DAY
     Route: 055
     Dates: start: 2011
  2. SPIRIVA [Suspect]
     Indication: PRODUCT USED FOR UNKNOWN INDICATION
     Route: 065
     Dates: start: 20130206
  3. WARFARIN [Concomitant]
     Indication: ANTICOAGULANT THERAPY

REACTIONS (5)
  - Lung infection [Recovered/Resolved]
  - Lung disorder [Recovered/Resolved]
  - Dry mouth [Recovered/Resolved]
  - Oropharyngeal pain [Recovered/Resolved]
  - Dysphagia [Not Recovered/Not Resolved]
